FAERS Safety Report 9822547 (Version 2)
Quarter: 2014Q1

REPORT INFORMATION
  Report Type: Spontaneous
  Country: AU (occurrence: AU)
  Receive Date: 20140116
  Receipt Date: 20140210
  Transmission Date: 20141002
  Serious: Yes (Other)
  Sender: FDA-Public Use
  Company Number: AU-ROCHE-1334116

PATIENT
  Age: 65 Year
  Sex: Male

DRUGS (2)
  1. LUCENTIS [Suspect]
     Indication: MACULAR OEDEMA
     Route: 050
  2. LUCENTIS [Suspect]
     Route: 050
     Dates: start: 20130409

REACTIONS (7)
  - Cataract [Unknown]
  - Cataract operation complication [Unknown]
  - Macular oedema [Not Recovered/Not Resolved]
  - Iris injury [Unknown]
  - Visual acuity reduced [Not Recovered/Not Resolved]
  - Diabetic retinal oedema [Unknown]
  - Post procedural complication [Unknown]
